FAERS Safety Report 4491290-8 (Version None)
Quarter: 2004Q4

REPORT INFORMATION
  Report Type: 
  Country: None (occurrence: None)
  Receive Date: 20041101
  Receipt Date: 20041015
  Transmission Date: 20050328
  Serious: Yes (Hospitalization)
  Sender: FDA-Public Use
  Company Number: WAES 0410DEU00504

PATIENT
  Age: 66 Year
  Sex: Male

DRUGS (6)
  1. VIOXX [Suspect]
     Indication: NEOPLASM PROPHYLAXIS
     Dosage: PO
     Route: 048
     Dates: start: 20040630, end: 20040930
  2. ALFUZOSIN HYDROCHLORIDE [Concomitant]
  3. ASPIRIN [Concomitant]
  4. IRBESARTAN [Concomitant]
  5. PIRETANIDE [Concomitant]
  6. VARDENAFIL DIHYDROCHLORIDE [Concomitant]

REACTIONS (1)
  - MYOCARDIAL INFARCTION [None]
